FAERS Safety Report 4790168-X (Version None)
Quarter: 2005Q3

REPORT INFORMATION
  Report Type: 
  Country: None (occurrence: None)
  Receive Date: 20050914
  Receipt Date: 20040726
  Transmission Date: 20060218
  Serious: Yes (Death)
  Sender: FDA-Public Use
  Company Number: 163-20785-04070126

PATIENT
  Age: 68 Year
  Sex: Male

DRUGS (5)
  1. THALOMID [Suspect]
     Indication: PROSTATE CANCER METASTATIC
     Dosage: 200 MG, QD, ORAL
     Route: 048
     Dates: start: 20040112, end: 20040501
  2. THALOMID [Suspect]
  3. LUPRON [Concomitant]
  4. CASODEX [Concomitant]
  5. ZOMETA [Concomitant]

REACTIONS (2)
  - DEATH [None]
  - DISEASE PROGRESSION [None]
